FAERS Safety Report 5407086-6 (Version None)
Quarter: 2007Q3

REPORT INFORMATION
  Report Type: 
  Country: None (occurrence: None)
  Receive Date: 20070802
  Receipt Date: 20070515
  Transmission Date: 20080115
  Serious: Yes (Hospitalization)
  Sender: FDA-Public Use
  Company Number: 001#1#2007-00350

PATIENT
  Age: 69 Year
  Sex: Male

DRUGS (1)
  1. NEURO-PATCH-DOSE-UNKNOWN (ROTIGOTINE) [Suspect]
     Indication: PARKINSON'S DISEASE
     Dosage: 8 MG/24H (8 MG/24H 1 IN 1 DAY(S)) TRANSDERMAL; 4 MG/24H (4 MG/24H 1 IN 1 DAY(S))
     Route: 062
     Dates: end: 20070304

REACTIONS (1)
  - MENTAL DISORDER DUE TO A GENERAL MEDICAL CONDITION [None]
